FAERS Safety Report 5750119-8 (Version None)
Quarter: 2008Q2

REPORT INFORMATION
  Report Type: 
  Country: None (occurrence: None)
  Receive Date: 20080527
  Receipt Date: 20080515
  Transmission Date: 20081010
  Serious: Yes (Hospitalization, Other)
  Sender: FDA-Public Use
  Company Number: US-PFIZER INC-2008026782

PATIENT
  Sex: Female
  Weight: 55.454 kg

DRUGS (2)
  1. DILANTIN [Suspect]
     Indication: EPILEPSY
     Dosage: FREQ:EVERY DAY
  2. PHENOBARBITAL TAB [Concomitant]

REACTIONS (6)
  - ANTICONVULSANT DRUG LEVEL INCREASED [None]
  - DIPLOPIA [None]
  - DRUG TOXICITY [None]
  - GAIT DISTURBANCE [None]
  - STOMACH DISCOMFORT [None]
  - VISION BLURRED [None]
